FAERS Safety Report 21736848 (Version 2)
Quarter: 2022Q4

REPORT INFORMATION
  Report Type: Other
  Country: ES (occurrence: ES)
  Receive Date: 20221216
  Receipt Date: 20221222
  Transmission Date: 20230113
  Serious: Yes (Other)
  Sender: FDA-Public Use
  Company Number: ES-ALVOGEN-2022088808

PATIENT
  Age: 27 Year
  Sex: Female

DRUGS (9)
  1. CLINDAMYCIN [Suspect]
     Active Substance: CLINDAMYCIN
     Indication: Antibiotic prophylaxis
     Dosage: 30 MINUTES BEFORE THE CESAREAN SECTION
  2. FLECAINIDE [Suspect]
     Active Substance: FLECAINIDE
     Indication: Shock
  3. ATENOLOL [Suspect]
     Active Substance: ATENOLOL
     Indication: Ventricular tachycardia
  4. METOPROLOL [Suspect]
     Active Substance: METOPROLOL
     Indication: Ventricular tachycardia
  5. BETAMETHASONE [Suspect]
     Active Substance: BETAMETHASONE
     Indication: Maternal therapy to enhance foetal lung maturity
     Dosage: SINGLE
  6. GENTAMICIN [Suspect]
     Active Substance: GENTAMICIN
     Indication: Antibiotic prophylaxis
     Dosage: 30 MINUTES BEFORE THE CESAREAN SECTION
  7. LIDOCAINE [Suspect]
     Active Substance: LIDOCAINE
     Indication: Anaesthesia
  8. PROGESTERONE [Suspect]
     Active Substance: PROGESTERONE
     Indication: Shortened cervix
  9. BUPIVACAINE [Suspect]
     Active Substance: BUPIVACAINE
     Indication: Anaesthesia

REACTIONS (3)
  - Premature rupture of membranes [Unknown]
  - Maternal exposure during pregnancy [Unknown]
  - Off label use [Unknown]
